FAERS Safety Report 8621996-8 (Version None)
Quarter: 2012Q3

REPORT INFORMATION
  Report Type: 
  Country: None (occurrence: None)
  Receive Date: 20120823
  Receipt Date: 20120823
  Transmission Date: 20120928
  Serious: Yes (Other)
  Sender: FDA-Public Use
  Company Number: None

PATIENT
  Age: 25 Year
  Sex: Female
  Weight: 52.1637 kg

DRUGS (2)
  1. ZOMIG [Suspect]
     Indication: MIGRAINE
     Dosage: 5MG PRN PO
     Route: 048
     Dates: start: 20120814, end: 20120815
  2. CYMBALTA [Suspect]
     Indication: DEPRESSION
     Dosage: 40MG QD PO
     Route: 048
     Dates: start: 20120401, end: 20120818

REACTIONS (1)
  - SEROTONIN SYNDROME [None]
